FAERS Safety Report 9289836 (Version 1)
Quarter: 2013Q2

REPORT INFORMATION
  Report Type: Spontaneous
  Country: US (occurrence: US)
  Receive Date: 20130515
  Receipt Date: 20130515
  Transmission Date: 20140414
  Serious: No
  Sender: FDA-Public Use
  Company Number: US-BIOGENIDEC-2013BI041968

PATIENT
  Age: 52 Year
  Sex: Male

DRUGS (1)
  1. AVONEX [Suspect]
     Indication: MULTIPLE SCLEROSIS
     Route: 030
     Dates: start: 20090905

REACTIONS (4)
  - Erectile dysfunction [Not Recovered/Not Resolved]
  - Drug dose omission [Unknown]
  - Pain [Recovered/Resolved with Sequelae]
  - Diarrhoea [Not Recovered/Not Resolved]
